FAERS Safety Report 19233463 (Version 2)
Quarter: 2021Q3

REPORT INFORMATION
  Report Type: Spontaneous
  Country: NO (occurrence: NO)
  Receive Date: 20210507
  Receipt Date: 20210909
  Transmission Date: 20211014
  Serious: Yes (Hospitalization, Other)
  Sender: FDA-Public Use
  Company Number: NO-GLAXOSMITHKLINE-NO2021097495

PATIENT
  Age: 42 Year
  Sex: Female

DRUGS (9)
  1. SUMATRIPTAN (SUMATRIPTAN SUCCINATE) [Interacting]
     Active Substance: SUMATRIPTAN SUCCINATE
     Indication: MIGRAINE
     Dosage: 12 MG, 12 MG 2?3 TIMES A WEEK
     Route: 058
     Dates: start: 2017, end: 20210314
  2. METOCLOPRAMIDE. [Concomitant]
     Active Substance: METOCLOPRAMIDE
     Indication: PRODUCT USED FOR UNKNOWN INDICATION
     Dosage: 1 DF, TID, 1 TABLET AS REQUIRED UP TO 3 TIMES DAILY.
     Route: 048
  3. EMGALITY [Concomitant]
     Active Substance: GALCANEZUMAB-GNLM
     Indication: MIGRAINE
     Dosage: ONE DOSE PER 4 WEEKS
     Route: 065
     Dates: start: 2021
  4. PANODIL [Concomitant]
     Active Substance: ACETAMINOPHEN
     Indication: PRODUCT USED FOR UNKNOWN INDICATION
     Dosage: 1 G
     Route: 048
  5. VIMOVO [Concomitant]
     Active Substance: ESOMEPRAZOLE MAGNESIUM\NAPROXEN
     Indication: PRODUCT USED FOR UNKNOWN INDICATION
     Dosage: 1 DF, BID, 1 TABLET UP TO 2 TIMES DAILY.
     Route: 048
  6. NARAMIG [Suspect]
     Active Substance: NARATRIPTAN HYDROCHLORIDE
     Indication: MIGRAINE
     Dosage: 2.5 G, 2.5 GR X2 2?3 TIMES A WEEK
     Route: 048
     Dates: start: 2020, end: 20210314
  7. SUMATRIPTAN (SUMATRIPTAN SUCCINATE) [Interacting]
     Active Substance: SUMATRIPTAN SUCCINATE
  8. IMOVANE [Concomitant]
     Active Substance: ZOPICLONE
     Indication: PRODUCT USED FOR UNKNOWN INDICATION
     Dosage: UNK UNK, QD, 1/2 TABLET UP TO 1 TIMES DAILY.
     Route: 048
  9. ZOFRAN [Concomitant]
     Active Substance: ONDANSETRON HYDROCHLORIDE
     Indication: PRODUCT USED FOR UNKNOWN INDICATION
     Dosage: 1 TABLET AS REQUIRED UP TO 2 TIMES DAILY
     Route: 048

REACTIONS (5)
  - Terminal ileitis [Recovered/Resolved]
  - Faecal calprotectin increased [Recovered/Resolved]
  - Intentional product use issue [Recovering/Resolving]
  - Drug interaction [Recovering/Resolving]
  - Abdominal pain [Recovering/Resolving]

NARRATIVE: CASE EVENT DATE: 20210308
